FAERS Safety Report 5321481-5 (Version None)
Quarter: 2007Q1

REPORT INFORMATION
  Report Type: 
  Country: None (occurrence: None)
  Receive Date: 20070220
  Receipt Date: 20061121
  Transmission Date: 20070707
  Serious: No
  Sender: FDA-Public Use
  Company Number: TPA2006A02101

PATIENT
  Age: 60 Year
  Sex: Male
  Weight: 74.8435 kg

DRUGS (4)
  1. ROZEREM [Suspect]
     Indication: POOR QUALITY SLEEP
     Dosage: 8 MG, HS, PER ORAL
     Route: 048
     Dates: start: 20061101, end: 20061114
  2. LIPITOR [Concomitant]
  3. ACIPHEX [Concomitant]
  4. ZOLOFT [Concomitant]

REACTIONS (1)
  - HEART RATE INCREASED [None]
